FAERS Safety Report 5362258-4 (Version None)
Quarter: 2007Q2

REPORT INFORMATION
  Report Type: 
  Country: None (occurrence: None)
  Receive Date: 20070619
  Receipt Date: 20070608
  Transmission Date: 20071010
  Serious: Yes (Hospitalization)
  Sender: FDA-Public Use
  Company Number: B0475393A

PATIENT
  Sex: Female

DRUGS (3)
  1. PANODIL RETARD [Suspect]
     Indication: PAIN
     Dosage: 4G PER DAY
     Route: 048
  2. IBUPROFEN [Concomitant]
     Indication: PAIN
  3. APAP W/ CODEINE [Concomitant]
     Indication: PAIN

REACTIONS (3)
  - CHEST PAIN [None]
  - DYSPNOEA [None]
  - TREMOR [None]
